FAERS Safety Report 6671767-7 (Version None)
Quarter: 2010Q2

REPORT INFORMATION
  Report Type: 
  Country: None (occurrence: None)
  Receive Date: 20100407
  Receipt Date: 20100329
  Transmission Date: 20101027
  Serious: Yes (Death, Hospitalization, Other)
  Sender: FDA-Public Use
  Company Number: NO-PFIZER INC-2010039503

PATIENT
  Age: 80 Year
  Sex: Female

DRUGS (12)
  1. LYRICA [Suspect]
     Indication: SUICIDE ATTEMPT
     Dosage: PRESCRIBED DOSE: 150+75+150 MG SINCE DEC2007
     Route: 048
     Dates: start: 20100211, end: 20100211
  2. LYRICA [Suspect]
     Dosage: UNK
  3. SOBRIL [Suspect]
     Dosage: PRESCRIBED DOSE: 15+5+10 MG PER DAY.
     Route: 048
  4. SEROQUEL [Suspect]
     Indication: SUICIDE ATTEMPT
     Dosage: PRESCRIBED DOSE: 75-125 MG
     Route: 048
     Dates: start: 20100211, end: 20100211
  5. TRIOBE [Concomitant]
  6. BETOLVEX [Concomitant]
  7. MONOKET OD [Concomitant]
  8. ATROVENT [Concomitant]
  9. NITROGLYCERIN [Concomitant]
     Route: 060
  10. PARACET [Concomitant]
     Dosage: 500MG+500MG+500MG+1G
  11. ALBYL-E [Concomitant]
  12. VENTOLIN [Concomitant]

REACTIONS (1)
  - POISONING [None]
